FAERS Safety Report 6270057-4 (Version None)
Quarter: 2009Q3

REPORT INFORMATION
  Report Type: 
  Country: None (occurrence: None)
  Receive Date: 20090716
  Receipt Date: 20090707
  Transmission Date: 20100115
  Serious: Yes (Other)
  Sender: FDA-Public Use
  Company Number: AU-NAPPMUNDI-USA-2009-0038946

PATIENT
  Sex: Male

DRUGS (2)
  1. OXYCONTIN [Suspect]
     Indication: PAIN
     Dosage: 60 MG, DAILY
     Route: 048
     Dates: start: 20070101
  2. NEURONTIN [Concomitant]
     Dosage: UNK
     Dates: start: 20070101

REACTIONS (3)
  - CONSTIPATION [None]
  - PAIN [None]
  - SUICIDAL IDEATION [None]
